FAERS Safety Report 9280692 (Version 2)
Quarter: 2013Q2

REPORT INFORMATION
  Report Type: Spontaneous
  Country: US (occurrence: US)
  Receive Date: 20130509
  Receipt Date: 20130529
  Transmission Date: 20140414
  Serious: Yes (Other)
  Sender: FDA-Public Use
  Company Number: US-PFIZER INC-2013141726

PATIENT
  Age: 33 Year
  Sex: Male
  Weight: 74.83 kg

DRUGS (2)
  1. LYRICA [Suspect]
     Dosage: 75 MG, 2X/DAY
     Route: 048
     Dates: start: 2004
  2. SOMA [Concomitant]
     Dosage: UNK

REACTIONS (2)
  - Back injury [Unknown]
  - Spinal column injury [Unknown]
